FAERS Safety Report 16980620 (Version 1)
Quarter: 2019Q4

REPORT INFORMATION
  Report Type: Other
  Country: VN (occurrence: VN)
  Receive Date: 20191031
  Receipt Date: 20191031
  Transmission Date: 20200122
  Serious: Yes (Life-Threatening)
  Sender: FDA-Public Use
  Company Number: VN-VITRUVIAS THERAPEUTICS-2076290

PATIENT
  Age: 73 Year
  Sex: Male

DRUGS (4)
  1. LIDOCAINE. [Suspect]
     Active Substance: LIDOCAINE
     Indication: NERVE BLOCK
  2. FENTANYL. [Concomitant]
     Active Substance: FENTANYL
     Route: 042
  3. PROPOFOL. [Concomitant]
     Active Substance: PROPOFOL
     Route: 042
  4. ROPIVACAINE HCL [Concomitant]
     Active Substance: ROPIVACAINE HYDROCHLORIDE

REACTIONS (1)
  - Local anaesthetic systemic toxicity [Recovered/Resolved]
